FAERS Safety Report 9377019 (Version 1)
Quarter: 2013Q2

REPORT INFORMATION
  Report Type: Spontaneous
  Country: US (occurrence: None)
  Receive Date: 20130628
  Receipt Date: 20130628
  Transmission Date: 20140414
  Serious: Yes (Other)
  Sender: FDA-Public Use
  Company Number: None

PATIENT
  Age: 49 None
  Sex: Female
  Weight: 59.88 kg

DRUGS (2)
  1. TIROSINT [Suspect]
     Indication: AUTOIMMUNE THYROIDITIS
     Route: 048
     Dates: start: 20130531, end: 20130606
  2. TIROSINT [Suspect]
     Indication: HYPOTHYROIDISM
     Route: 048
     Dates: start: 20130531, end: 20130606

REACTIONS (8)
  - Nervousness [None]
  - Tremor [None]
  - Anxiety [None]
  - Disturbance in attention [None]
  - Psychotic disorder [None]
  - Mood altered [None]
  - Crying [None]
  - Paranoia [None]
